FAERS Safety Report 7731180-8 (Version None)
Quarter: 2011Q3

REPORT INFORMATION
  Report Type: 
  Country: None (occurrence: None)
  Receive Date: 20110906
  Receipt Date: 20110830
  Transmission Date: 20111222
  Serious: Yes (Death, Other)
  Sender: FDA-Public Use
  Company Number: PHHY2011IT71874

PATIENT
  Age: 58 Year
  Sex: Male

DRUGS (3)
  1. LIORESAL [Suspect]
     Indication: MUSCLE SPASTICITY
     Dosage: 20 UG TESTING DOSE
     Route: 037
  2. DIAZEPAM [Suspect]
     Dosage: 10 MG, QD
     Route: 048
  3. BACLOFEN [Suspect]
     Indication: MUSCLE SPASTICITY
     Dosage: 100 MG, QD
     Route: 048

REACTIONS (4)
  - CARDIAC ARREST [None]
  - HYPOTENSION [None]
  - DRUG INEFFECTIVE [None]
  - BRADYCARDIA [None]
